FAERS Safety Report 23125533 (Version 3)
Quarter: 2025Q3

REPORT INFORMATION
  Report Type: Spontaneous
  Country: US (occurrence: US)
  Receive Date: 20231030
  Receipt Date: 20250901
  Transmission Date: 20251021
  Serious: No
  Sender: SANOFI AVENTIS
  Company Number: US-SA-SAC20231024000681

PATIENT
  Age: 75 Year
  Sex: Female

DRUGS (3)
  1. DUPIXENT [Suspect]
     Active Substance: DUPILUMAB
     Indication: Dermatitis atopic
     Route: 058
  2. DUPIXENT [Suspect]
     Active Substance: DUPILUMAB
     Dosage: 300 MG, QOW
     Route: 058
  3. DUPIXENT [Suspect]
     Active Substance: DUPILUMAB
     Dosage: UNK, QM

REACTIONS (9)
  - Skin texture abnormal [Unknown]
  - Dry skin [Unknown]
  - Hypoaesthesia [Recovered/Resolved]
  - Pruritus [Unknown]
  - Product dose omission issue [Unknown]
  - Pain in extremity [Recovered/Resolved]
  - Injection site pain [Unknown]
  - Dermatitis atopic [Unknown]
  - Intentional product misuse [Unknown]
